FAERS Safety Report 10065249 (Version 1)
Quarter: 2014Q1

REPORT INFORMATION
  Report Type: Spontaneous
  Country: US (occurrence: None)
  Receive Date: 20140328
  Receipt Date: 20140328
  Transmission Date: 20141002
  Serious: No
  Sender: FDA-Public Use
  Company Number: CABO-14003843

PATIENT
  Age: 43 Year
  Sex: Female

DRUGS (6)
  1. COMETRIQ (CABOZANTINIB) CAPSULE [Suspect]
     Indication: THYROID CANCER
     Route: 048
     Dates: start: 20120101
  2. SYNTHROID [Concomitant]
  3. AMLODIPINE BESYLATE [Concomitant]
  4. CALCIUM [Concomitant]
  5. MAGNESIUM [Concomitant]
  6. POTASSIUM [Concomitant]

REACTIONS (6)
  - Photosensitivity reaction [None]
  - Alopecia [None]
  - Hair colour changes [None]
  - Diarrhoea [None]
  - Nasopharyngitis [None]
  - Nausea [None]
